FAERS Safety Report 22157555 (Version 1)
Quarter: 2023Q1

REPORT INFORMATION
  Report Type: Spontaneous
  Country: US (occurrence: None)
  Receive Date: 20230330
  Receipt Date: 20230330
  Transmission Date: 20230417
  Serious: Yes (Life-Threatening, Hospitalization)
  Sender: FDA-Public Use
  Company Number: None

PATIENT
  Age: 40 Year
  Sex: Female
  Weight: 51.1 kg

DRUGS (3)
  1. PAXLOVID [Suspect]
     Active Substance: NIRMATRELVIR\RITONAVIR
     Indication: SARS-CoV-2 test positive
  2. VERAPAMIL [Suspect]
     Active Substance: VERAPAMIL HYDROCHLORIDE
  3. QUETIAPINE [Suspect]
     Active Substance: QUETIAPINE

REACTIONS (3)
  - Mental status changes [None]
  - Bradycardia [None]
  - Drug interaction [None]

NARRATIVE: CASE EVENT DATE: 20230329
